FAERS Safety Report 5694189-4 (Version None)
Quarter: 2008Q2

REPORT INFORMATION
  Report Type: 
  Country: None (occurrence: None)
  Receive Date: 20080402
  Receipt Date: 20080326
  Transmission Date: 20081010
  Serious: Yes (Other)
  Sender: FDA-Public Use
  Company Number: 2008007618

PATIENT
  Sex: Female

DRUGS (1)
  1. BENYLIN [Suspect]
     Dosage: ORAL
     Route: 048

REACTIONS (1)
  - LOSS OF CONSCIOUSNESS [None]
